FAERS Safety Report 23321173 (Version 1)
Quarter: 2023Q4

REPORT INFORMATION
  Report Type: Spontaneous
  Country: GB (occurrence: GB)
  Receive Date: 20231220
  Receipt Date: 20231220
  Transmission Date: 20240110
  Serious: Yes (Death)
  Sender: FDA-Public Use
  Company Number: None

PATIENT
  Age: 70 Year
  Sex: Male
  Weight: 100 kg

DRUGS (4)
  1. GADOBUTROL [Suspect]
     Active Substance: GADOBUTROL
     Indication: Scan with contrast
     Dosage: 8 ML, UNK
     Dates: start: 20231211, end: 20231211
  2. PEPPERMINT OIL [Concomitant]
     Active Substance: PEPPERMINT OIL
  3. NITROGLYCERIN [Concomitant]
     Active Substance: NITROGLYCERIN
  4. TAMSULOSIN [Concomitant]
     Active Substance: TAMSULOSIN

REACTIONS (2)
  - Cough [Fatal]
  - Dyspnoea [Not Recovered/Not Resolved]

NARRATIVE: CASE EVENT DATE: 20231211
